FAERS Safety Report 6079509-3 (Version None)
Quarter: 2009Q1

REPORT INFORMATION
  Report Type: 
  Country: None (occurrence: None)
  Receive Date: 20090217
  Receipt Date: 20090210
  Transmission Date: 20090719
  Serious: Yes (Other)
  Sender: FDA-Public Use
  Company Number: DE-RANBAXY-2009RR-20558

PATIENT
  Sex: Male
  Weight: 92 kg

DRUGS (5)
  1. CAPTOPRIL [Suspect]
     Indication: HYPERTENSION
     Dosage: 1 DF, QD
     Route: 048
     Dates: start: 20080919, end: 20081007
  2. CAPTOPRIL [Suspect]
     Dosage: 19 DF, UNK
     Route: 048
     Dates: start: 20080919, end: 20081007
  3. METFORMIN BASICS 850MG [Suspect]
     Indication: TYPE 2 DIABETES MELLITUS
     Dosage: 850 MG, QD
     Route: 048
     Dates: start: 20080929, end: 20081009
  4. IBUDOLOR [Concomitant]
     Indication: PAIN
     Dosage: UNK
     Route: 048
     Dates: start: 20080715, end: 20081001
  5. TRAMADOL HCL [Concomitant]
     Indication: BACK PAIN
     Dosage: UNK
     Route: 048
     Dates: start: 20081007, end: 20081007

REACTIONS (1)
  - THROMBOTIC THROMBOCYTOPENIC PURPURA [None]
